FAERS Safety Report 8108043-1 (Version None)
Quarter: 2012Q1

REPORT INFORMATION
  Report Type: 
  Country: None (occurrence: None)
  Receive Date: 20120202
  Receipt Date: 20120125
  Transmission Date: 20120608
  Serious: Yes (Hospitalization)
  Sender: FDA-Public Use
  Company Number: FR-PFIZER INC-K201101100

PATIENT
  Age: 61 Year
  Sex: Male

DRUGS (5)
  1. MYCOPHENOLATE MOFETIL (CELLCEPT) [Concomitant]
     Dosage: UNK
  2. PHOSPHONEUROS [Concomitant]
     Dosage: UNK
  3. PROGRAF [Concomitant]
     Dosage: UNK
  4. RAMIPRIL [Suspect]
     Dosage: 10 MG, 1X/DAY
     Route: 048
     Dates: start: 20110101, end: 20110701
  5. TIORFAN [Concomitant]
     Dosage: UNK

REACTIONS (1)
  - ANAPHYLACTIC SHOCK [None]
